FAERS Safety Report 12246758 (Version 1)
Quarter: 2016Q2

REPORT INFORMATION
  Report Type: Spontaneous
  Country: PL (occurrence: PL)
  Receive Date: 20160407
  Receipt Date: 20160407
  Transmission Date: 20160815
  Serious: Yes (Hospitalization, Other)
  Sender: FDA-Public Use
  Company Number: PL-KADMON PHARMACEUTICALS, LLC-KAD201604-001302

PATIENT
  Age: 77 Year
  Sex: Female
  Weight: 72 kg

DRUGS (6)
  1. VIEKIRAX [Suspect]
     Active Substance: OMBITASVIR\PARITAPREVIR\RITONAVIR
     Indication: CHRONIC HEPATITIS C
     Route: 048
     Dates: start: 20151217, end: 20160105
  2. LOSARTAN. [Concomitant]
     Active Substance: LOSARTAN
  3. DILTIAZEM [Concomitant]
     Active Substance: DILTIAZEM
  4. EXVIERA 250 MG TABLET [Suspect]
     Active Substance: DASABUVIR
     Indication: CHRONIC HEPATITIS C
     Route: 048
     Dates: start: 20151217, end: 20160105
  5. RIBAVIRIN 200 MG TABLETS [Suspect]
     Active Substance: RIBAVIRIN
     Indication: CHRONIC HEPATITIS C
     Route: 048
     Dates: start: 20151217, end: 20160105
  6. SALMEX (SERETIDE) [Concomitant]

REACTIONS (1)
  - Rhabdomyolysis [Recovered/Resolved]

NARRATIVE: CASE EVENT DATE: 20160104
